FAERS Safety Report 5820253-2 (Version None)
Quarter: 2008Q3

REPORT INFORMATION
  Report Type: 
  Country: None (occurrence: None)
  Receive Date: 20080721
  Receipt Date: 20080709
  Transmission Date: 20090109
  Serious: Yes (Hospitalization, Other)
  Sender: FDA-Public Use
  Company Number: 235699J08USA

PATIENT
  Age: 51 Year
  Sex: Female

DRUGS (7)
  1. REBIF [Suspect]
     Indication: MULTIPLE SCLEROSIS
     Dosage: 44 MCG, 3 IN 1 WEEKS, SUBCUTANEOUS
     Route: 058
     Dates: start: 20060705
  2. PREDNISONE (PREDNISONE /00044701/) [Concomitant]
  3. VISTARIL [Concomitant]
  4. LEXAPOR (ESCITALOPRAM OXALATE) [Concomitant]
  5. KLONOPIN [Concomitant]
  6. ATENOLOL [Concomitant]
  7. IBUPROFEN [Concomitant]

REACTIONS (6)
  - ABDOMINAL PAIN [None]
  - EYE PRURITUS [None]
  - EYE SWELLING [None]
  - HYPERSENSITIVITY [None]
  - MULTIPLE SCLEROSIS [None]
  - SUPERFICIAL INJURY OF EYE [None]
